FAERS Safety Report 25101079 (Version 1)
Quarter: 2025Q1

REPORT INFORMATION
  Report Type: Spontaneous
  Country: US (occurrence: US)
  Receive Date: 20250320
  Receipt Date: 20250320
  Transmission Date: 20250409
  Serious: No
  Sender: SMITH AND NEPHEW
  Company Number: US-SMITH AND NEPHEW, INC-2024SMT00023

PATIENT
  Sex: Male
  Weight: 97.506 kg

DRUGS (6)
  1. COLLAGENASE SANTYL [Suspect]
     Active Substance: COLLAGENASE CLOSTRIDIUM HISTOLYTICUM
     Indication: Wound
     Dosage: COVER THE WOUND, EVERY DAY
     Route: 061
     Dates: start: 20230227, end: 2024
  2. COLLAGENASE SANTYL [Suspect]
     Active Substance: COLLAGENASE CLOSTRIDIUM HISTOLYTICUM
     Indication: Debridement
  3. ELIQUIS [Concomitant]
     Active Substance: APIXABAN
  4. PLAVIX [Concomitant]
     Active Substance: CLOPIDOGREL BISULFATE
  5. OXYCODONE [Concomitant]
     Active Substance: OXYCODONE
  6. IBUPROFEN [Concomitant]
     Active Substance: IBUPROFEN

REACTIONS (2)
  - Wound complication [Not Recovered/Not Resolved]
  - Product dose omission issue [Not Recovered/Not Resolved]

NARRATIVE: CASE EVENT DATE: 20240101
